FAERS Safety Report 7958774-9 (Version None)
Quarter: 2011Q4

REPORT INFORMATION
  Report Type: 
  Country: None (occurrence: None)
  Receive Date: 20111206
  Receipt Date: 20111201
  Transmission Date: 20120403
  Serious: Yes (Hospitalization)
  Sender: FDA-Public Use
  Company Number: US-VERTEX PHARMACEUTICALS INC.-AE-2011-001260

PATIENT
  Sex: Male

DRUGS (6)
  1. INTERFERON [Concomitant]
     Indication: HEPATITIS C
     Dates: start: 20110804
  2. ROSUVASTATIN [Concomitant]
  3. RIBAVIRIN [Concomitant]
     Indication: HEPATITIS C
     Dates: start: 20110804
  4. LISINOPRIL [Concomitant]
  5. INCIVEK [Suspect]
     Indication: HEPATITIS C
     Route: 048
     Dates: start: 20110804
  6. HYDROCHLOROTHIAZIDE [Concomitant]

REACTIONS (3)
  - HYPOCALCAEMIA [None]
  - HYPONATRAEMIA [None]
  - HYPOVOLAEMIA [None]
